FAERS Safety Report 20327899 (Version 2)
Quarter: 2022Q1

REPORT INFORMATION
  Report Type: Spontaneous
  Country: US (occurrence: US)
  Receive Date: 20220112
  Receipt Date: 20220126
  Transmission Date: 20220423
  Serious: Yes (Hospitalization, Other)
  Sender: FDA-Public Use
  Company Number: US-INDIVIOR EUROPE LIMITED-INDV-132494-2022

PATIENT

DRUGS (2)
  1. SUBOXONE [Suspect]
     Active Substance: BUPRENORPHINE HYDROCHLORIDE\NALOXONE HYDROCHLORIDE
     Indication: Product used for unknown indication
     Dosage: 8 MILLIGRAM, UNKNOWN
     Route: 065
  2. SUBOXONE [Suspect]
     Active Substance: BUPRENORPHINE HYDROCHLORIDE\NALOXONE HYDROCHLORIDE
     Indication: Product used for unknown indication
     Dosage: UNK
     Route: 065

REACTIONS (11)
  - Suicidal ideation [Not Recovered/Not Resolved]
  - Toxicity to various agents [Unknown]
  - Delusion [Not Recovered/Not Resolved]
  - Inappropriate schedule of product discontinuation [Recovered/Resolved]
  - Mental disorder [Unknown]
  - Euphoric mood [Unknown]
  - Wrong technique in product usage process [Recovered/Resolved]
  - Anxiety [Unknown]
  - Pain [Unknown]
  - Drug dependence [Unknown]
  - Drug dependence [Not Recovered/Not Resolved]
